FAERS Safety Report 9146723 (Version 3)
Quarter: 2013Q2

REPORT INFORMATION
  Report Type: Spontaneous
  Country: JP (occurrence: JP)
  Receive Date: 20130307
  Receipt Date: 20130405
  Transmission Date: 20140414
  Serious: Yes (Death)
  Sender: FDA-Public Use
  Company Number: JP-ROCHE-1197104

PATIENT
  Sex: Male
  Weight: 67 kg

DRUGS (3)
  1. ACTEMRA [Suspect]
     Indication: CASTLEMAN^S DISEASE
     Route: 041
     Dates: start: 20130222, end: 20130222
  2. NEOAMIYU [Concomitant]
     Indication: CASTLEMAN^S DISEASE
     Route: 042
     Dates: start: 20130219, end: 20130223
  3. HEPARIN NA [Concomitant]
     Indication: CEREBRAL INFARCTION
     Route: 042
     Dates: start: 20130205, end: 20130223

REACTIONS (1)
  - Multi-organ failure [Fatal]
